FAERS Safety Report 7180258-9 (Version None)
Quarter: 2010Q4

REPORT INFORMATION
  Report Type: 
  Country: None (occurrence: None)
  Receive Date: 20101123
  Receipt Date: 20100826
  Transmission Date: 20110411
  Serious: No
  Sender: FDA-Public Use
  Company Number: 017867

PATIENT
  Sex: Female
  Weight: 68.4 kg

DRUGS (1)
  1. CIMZIA [Suspect]
     Indication: CROHN'S DISEASE
     Dosage: (2 NEEDLES EVERY 28 DAYS SUBCUTANEOUS)
     Route: 058
     Dates: start: 20100702

REACTIONS (5)
  - DRUG INEFFECTIVE [None]
  - ECZEMA [None]
  - FATIGUE [None]
  - INSOMNIA [None]
  - ORAL HERPES [None]
